FAERS Safety Report 6152952-X (Version None)
Quarter: 2009Q2

REPORT INFORMATION
  Report Type: 
  Country: None (occurrence: None)
  Receive Date: 20090413
  Receipt Date: 20090403
  Transmission Date: 20091009
  Serious: Yes (Disabling, Other)
  Sender: FDA-Public Use
  Company Number: CH-ABBOTT-09P-151-0566582-00

PATIENT
  Age: 44 Year
  Sex: Male

DRUGS (3)
  1. KALETRA [Suspect]
     Indication: DRUG USE FOR UNKNOWN INDICATION
     Dates: start: 20070723
  2. TRUVADA [Suspect]
     Indication: HIV INFECTION
     Dates: start: 20070723
  3. ABACAVIR SULFATE/LAMIVUDINE [Suspect]
     Indication: DRUG USE FOR UNKNOWN INDICATION
     Dates: start: 20070723

REACTIONS (2)
  - MULTIPLE FRACTURES [None]
  - OSTEOPOROSIS [None]
